FAERS Safety Report 7933979-1 (Version None)
Quarter: 2011Q4

REPORT INFORMATION
  Report Type: 
  Country: None (occurrence: None)
  Receive Date: 20111116
  Receipt Date: 20111109
  Transmission Date: 20120403
  Serious: Yes (Death, Life-Threatening, Hospitalization)
  Sender: FDA-Public Use
  Company Number: 2011SP052923

PATIENT
  Age: 57 Year
  Sex: Female
  Weight: 67.1324 kg

DRUGS (11)
  1. TEMODAR [Suspect]
     Indication: GLIOBLASTOMA MULTIFORME
     Dosage: 140 MG;QD
     Dates: start: 20110425, end: 20110604
  2. CARVEDILOL [Concomitant]
  3. DEXAMETHASONE [Concomitant]
  4. KEPPRA [Concomitant]
  5. FLEXERIL [Concomitant]
  6. HYDROCODONE BITARTRATE [Concomitant]
  7. LORAZEPAM [Concomitant]
  8. NORVASC [Concomitant]
  9. LISINOPRIL AND HYDROCHLOROTHIAZIDE [Concomitant]
  10. GLIADEL [Suspect]
     Indication: GLIOBLASTOMA MULTIFORME
  11. BEVACIZUMAB [Suspect]
     Indication: GLIOBLASTOMA MULTIFORME

REACTIONS (20)
  - HYPOKALAEMIA [None]
  - RECTAL HAEMORRHAGE [None]
  - PYREXIA [None]
  - COUGH [None]
  - OXYGEN SATURATION DECREASED [None]
  - PANCYTOPENIA [None]
  - CHILLS [None]
  - CHEST PAIN [None]
  - RESPIRATORY FAILURE [None]
  - LUNG CONSOLIDATION [None]
  - DECREASED APPETITE [None]
  - SEPSIS [None]
  - PNEUMONIA [None]
  - HYPOTENSION [None]
  - NAUSEA [None]
  - PULMONARY EMBOLISM [None]
  - PLEURAL EFFUSION [None]
  - HYPERNATRAEMIA [None]
  - CLOSTRIDIUM COLITIS [None]
  - GENERAL PHYSICAL CONDITION ABNORMAL [None]
